FAERS Safety Report 7028888-9 (Version None)
Quarter: 2010Q4

REPORT INFORMATION
  Report Type: 
  Country: None (occurrence: None)
  Receive Date: 20101005
  Receipt Date: 20100924
  Transmission Date: 20110411
  Serious: Yes (Death, Hospitalization)
  Sender: FDA-Public Use
  Company Number: PH-BAXTER-2010BH024588

PATIENT
  Age: 85 Year
  Sex: Female

DRUGS (1)
  1. DIANEAL [Suspect]
     Indication: PERITONEAL DIALYSIS
     Route: 033
     Dates: start: 20100315

REACTIONS (3)
  - ACUTE MYOCARDIAL INFARCTION [None]
  - DECREASED APPETITE [None]
  - SEPSIS [None]
